FAERS Safety Report 13183753 (Version 1)
Quarter: 2017Q1

REPORT INFORMATION
  Report Type: Spontaneous
  Country: GB (occurrence: GB)
  Receive Date: 20170203
  Receipt Date: 20170203
  Transmission Date: 20170428
  Serious: Yes (Death, Other)
  Sender: FDA-Public Use
  Company Number: GB-009507513-1701GBR014010

PATIENT
  Age: 48 Year
  Sex: Male

DRUGS (4)
  1. MARAVIROC [Suspect]
     Active Substance: MARAVIROC
     Dosage: 300 MG DAILY
  2. ISENTRESS [Suspect]
     Active Substance: RALTEGRAVIR POTASSIUM
     Dosage: 400 MG TWICE DAILY
     Route: 048
  3. LAMIVUDINE. [Suspect]
     Active Substance: LAMIVUDINE
     Dosage: 50 MG DAILY
  4. ABACAVIR. [Suspect]
     Active Substance: ABACAVIR
     Dosage: 600 MG DAILY

REACTIONS (1)
  - Death [Fatal]

NARRATIVE: CASE EVENT DATE: 201612
